FAERS Safety Report 16150431 (Version 2)
Quarter: 2019Q2

REPORT INFORMATION
  Report Type: Report from Study
  Country: US (occurrence: US)
  Receive Date: 20190402
  Receipt Date: 20190513
  Transmission Date: 20190711
  Serious: Yes (Hospitalization)
  Sender: FDA-Public Use
  Company Number: US-ACTELION-A-NJ2019-188356

PATIENT
  Age: 85 Year
  Sex: Female

DRUGS (6)
  1. OPSUMIT [Suspect]
     Active Substance: MACITENTAN
     Indication: PULMONARY ARTERIAL HYPERTENSION
     Dosage: 10 MG, QD
     Route: 048
     Dates: start: 20180130
  2. SYNTHROID [Concomitant]
     Active Substance: LEVOTHYROXINE SODIUM
  3. ADCIRCA [Concomitant]
     Active Substance: TADALAFIL
  4. MULTIVITAMINUM [Concomitant]
  5. CALCIUM [Concomitant]
     Active Substance: CALCIUM
  6. OCUVITE [Concomitant]
     Active Substance: VITAMINS

REACTIONS (2)
  - Viral infection [Recovered/Resolved]
  - Foot operation [Unknown]

NARRATIVE: CASE EVENT DATE: 20190318
